FAERS Safety Report 26073935 (Version 1)
Quarter: 2025Q4

REPORT INFORMATION
  Report Type: Spontaneous
  Country: JP (occurrence: JP)
  Receive Date: 20251121
  Receipt Date: 20251121
  Transmission Date: 20260118
  Serious: Yes (Death, Other)
  Sender: MERCK SHARP & DOHME LLC
  Company Number: JP-009507513-2352313

PATIENT
  Age: 8 Decade
  Sex: Female

DRUGS (3)
  1. PEMBROLIZUMAB [Suspect]
     Active Substance: PEMBROLIZUMAB
     Indication: Metastatic renal cell carcinoma
  2. LENVATINIB MESYLATE [Suspect]
     Active Substance: LENVATINIB MESYLATE
     Indication: Metastatic renal cell carcinoma
     Route: 048
  3. LENVATINIB MESYLATE [Suspect]
     Active Substance: LENVATINIB MESYLATE
     Indication: Metastatic renal cell carcinoma
     Dosage: DOSE REDUCED
     Route: 048

REACTIONS (6)
  - Malignant neoplasm progression [Fatal]
  - Platelet count decreased [Unknown]
  - Hypothyroidism [Unknown]
  - Hepatic function abnormal [Unknown]
  - Dysphonia [Unknown]
  - Therapy partial responder [Unknown]
